FAERS Safety Report 7898138-X (Version None)
Quarter: 2011Q4

REPORT INFORMATION
  Report Type: 
  Country: None (occurrence: None)
  Receive Date: 20111107
  Receipt Date: 20111026
  Transmission Date: 20120403
  Serious: Yes (Hospitalization)
  Sender: FDA-Public Use
  Company Number: AU-MERCK-1110USA03960

PATIENT
  Age: 68 Year
  Sex: Male

DRUGS (23)
  1. ZOCOR [Suspect]
     Indication: METABOLIC DISORDER
     Route: 048
  2. GLICLAZIDE [Concomitant]
     Route: 065
  3. MYLANTA [Concomitant]
     Route: 065
  4. ACETAMINOPHEN [Concomitant]
     Route: 065
  5. TRANDOLAPRIL [Concomitant]
     Route: 065
  6. FELODIPINE [Concomitant]
     Route: 065
  7. METHYLDOPA [Concomitant]
     Route: 048
  8. FUROSEMIDE [Concomitant]
     Dosage: MIDDAY
     Route: 065
  9. METFORMIN [Concomitant]
     Route: 065
  10. ATENOLOL [Suspect]
     Route: 065
  11. DILTIAZEM [Concomitant]
     Route: 065
  12. FUROSEMIDE [Concomitant]
     Route: 065
  13. ADALAT [Concomitant]
     Route: 065
  14. PREDNISOLONE [Concomitant]
     Route: 065
  15. ASPIRIN [Concomitant]
     Route: 065
  16. CITRAVESCENT [Concomitant]
     Route: 065
  17. FOLIC ACID [Concomitant]
     Route: 065
  18. IMDUR [Concomitant]
     Route: 065
  19. OMEPRAZOLE [Concomitant]
     Route: 065
  20. TEMAZEPAM [Concomitant]
     Route: 065
  21. SILDENAFIL CITRATE [Suspect]
     Route: 065
  22. ALLOPURINOL [Concomitant]
     Route: 065
  23. NITROGLYCERIN [Concomitant]
     Route: 065

REACTIONS (2)
  - HYPERTENSION [None]
  - ANGINA UNSTABLE [None]
